FAERS Safety Report 6328157-6 (Version None)
Quarter: 2009Q3

REPORT INFORMATION
  Report Type: 
  Country: None (occurrence: None)
  Receive Date: 20090825
  Receipt Date: 20090127
  Transmission Date: 20100115
  Serious: No
  Sender: FDA-Public Use
  Company Number: US-ABBOTT-09P-163-0500534-00

PATIENT
  Sex: Female

DRUGS (5)
  1. SYNTHROID [Suspect]
     Indication: HYPOTHYROIDISM
     Dosage: PATIENT DISSOLVES IN WATER
     Route: 048
  2. CALTRATE + D [Concomitant]
     Indication: OSTEOPOROSIS
     Dosage: PATIENT DISSOLVES IN WATER
     Route: 048
  3. ENSURE [Concomitant]
     Indication: WEIGHT INCREASED
     Route: 048
     Dates: start: 20080101
  4. MAGNESIUM [Concomitant]
     Indication: OSTEOPOROSIS
     Dosage: PATIENT DISSOLVES IN WATER
     Route: 048
     Dates: start: 20080101
  5. LISINOPRIL [Concomitant]
     Indication: HYPERTENSION
     Dosage: TAKES WITH FOOD
     Route: 048

REACTIONS (2)
  - THROAT IRRITATION [None]
  - WEIGHT DECREASED [None]
